FAERS Safety Report 17666699 (Version 1)
Quarter: 2020Q2

REPORT INFORMATION
  Report Type: Spontaneous
  Country: US (occurrence: US)
  Receive Date: 20200414
  Receipt Date: 20200414
  Transmission Date: 20200713
  Serious: Yes (Other)
  Sender: FDA-Public Use
  Company Number: US-BAYER-2020-059655

PATIENT
  Age: 8 Year
  Sex: Female

DRUGS (2)
  1. ACETYLSALICYLIC ACID [Suspect]
     Active Substance: ASPIRIN
  2. WARFARIN [Interacting]
     Active Substance: WARFARIN

REACTIONS (4)
  - Off label use [None]
  - Product use issue [None]
  - Subarachnoid haemorrhage [None]
  - Labelled drug-drug interaction medication error [None]
